FAERS Safety Report 20430969 (Version 1)
Quarter: 2022Q1

REPORT INFORMATION
  Report Type: Report from Study
  Country: IL (occurrence: IL)
  Receive Date: 20220204
  Receipt Date: 20220204
  Transmission Date: 20220423
  Serious: Yes (Hospitalization)
  Sender: FDA-Public Use
  Company Number: IL-ABBVIE-22K-082-4264367-00

PATIENT
  Sex: Male

DRUGS (2)
  1. CARBIDOPA\LEVODOPA [Suspect]
     Active Substance: CARBIDOPA\LEVODOPA
     Indication: Parkinson^s disease
     Route: 050
     Dates: start: 20170610
  2. CARBIDOPA\LEVODOPA [Suspect]
     Active Substance: CARBIDOPA\LEVODOPA
     Dosage: MD(ML)6.5, CD(ML/H)2.6, EXTRA DOSE(ML)1.5, NIGHT CONTINUOUS DOSE (ML/H)1.5
     Route: 050

REACTIONS (3)
  - Pyrexia [Recovering/Resolving]
  - Blood pressure increased [Unknown]
  - Apathy [Unknown]
